FAERS Safety Report 24295852 (Version 1)
Quarter: 2024Q3

REPORT INFORMATION
  Report Type: Spontaneous
  Country: US (occurrence: US)
  Receive Date: 20240908
  Receipt Date: 20240908
  Transmission Date: 20241017
  Serious: Yes (Other)
  Sender: AMGEN
  Company Number: US-AMGEN-USASP2024175399

PATIENT
  Age: 63 Year
  Sex: Male

DRUGS (6)
  1. PREDNISONE [Suspect]
     Active Substance: PREDNISONE
     Indication: Chronic obstructive pulmonary disease
     Dosage: UNK
     Route: 065
  2. BUDESONIDE\FORMOTEROL [Concomitant]
     Active Substance: BUDESONIDE\FORMOTEROL
     Indication: Chronic obstructive pulmonary disease
     Dosage: UNK
     Route: 065
  3. TIOTROPIUM BROMIDE [Concomitant]
     Active Substance: TIOTROPIUM BROMIDE
     Indication: Chronic obstructive pulmonary disease
     Dosage: UNK
     Route: 065
  4. AMPICILLIN SODIUM\SULBACTAM SODIUM [Concomitant]
     Active Substance: AMPICILLIN SODIUM\SULBACTAM SODIUM
     Indication: Chronic obstructive pulmonary disease
     Dosage: UNK
     Route: 065
  5. ALBUTEROL SULFATE;IPRATROPIUM BROMIDE [Concomitant]
     Indication: Chronic obstructive pulmonary disease
     Dosage: UNK, NEBULIZER
     Route: 065
  6. GUAIFENESIN [Concomitant]
     Active Substance: GUAIFENESIN
     Indication: Chronic obstructive pulmonary disease
     Dosage: UNK
     Route: 065

REACTIONS (5)
  - Empyema [Unknown]
  - Sputum retention [Unknown]
  - Pleural effusion [Unknown]
  - Procedural pain [Unknown]
  - Emphysema [Unknown]
